FAERS Safety Report 13074351 (Version 1)
Quarter: 2016Q4

REPORT INFORMATION
  Report Type: Spontaneous
  Country: US (occurrence: US)
  Receive Date: 20161230
  Receipt Date: 20161230
  Transmission Date: 20170207
  Serious: Yes (Other)
  Sender: FDA-Public Use
  Company Number: US-009507513-1612USA012937

PATIENT
  Age: 49 Year
  Sex: Male

DRUGS (3)
  1. INTEGRILIN [Suspect]
     Active Substance: EPTIFIBATIDE
     Dosage: UNKNOWN
  2. ASPIRIN. [Concomitant]
     Active Substance: ASPIRIN
     Dosage: UNK
  3. TICAGRELOR [Suspect]
     Active Substance: TICAGRELOR
     Dosage: UNK

REACTIONS (1)
  - Haemothorax [Unknown]
